FAERS Safety Report 4696717-4 (Version None)
Quarter: 2005Q2

REPORT INFORMATION
  Report Type: 
  Country: None (occurrence: None)
  Receive Date: 20050620
  Receipt Date: 20050610
  Transmission Date: 20051028
  Serious: Yes (Hospitalization)
  Sender: FDA-Public Use
  Company Number: 2005US-00557

PATIENT
  Age: 67 Year
  Sex: Female

DRUGS (4)
  1. ENALAPRIL MALEATE(ENALAPRIL MALEATE) UNKNOWN [Suspect]
     Indication: ANGIOPATHY
  2. BISOPROLOL [Concomitant]
  3. BUMETANIDE [Concomitant]
  4. ISOORBIDE MONONITRATE [Concomitant]

REACTIONS (6)
  - BLOOD BICARBONATE DECREASED [None]
  - BLOOD UREA INCREASED [None]
  - DIALYSIS [None]
  - DIARRHOEA [None]
  - HYPERKALAEMIA [None]
  - LOSS OF CONSCIOUSNESS [None]
